FAERS Safety Report 21190217 (Version 1)
Quarter: 2022Q3

REPORT INFORMATION
  Report Type: Report from Study
  Country: US (occurrence: US)
  Receive Date: 20220809
  Receipt Date: 20220809
  Transmission Date: 20221027
  Serious: Yes (Hospitalization)
  Sender: FDA-Public Use
  Company Number: US-PFIZER INC-PV202200038441

PATIENT
  Age: 70 Year
  Sex: Female
  Weight: 56.4 kg

DRUGS (4)
  1. BINIMETINIB [Suspect]
     Active Substance: BINIMETINIB
     Indication: Adenoid cystic carcinoma
     Dosage: 15 MG, 2X/DAY (1)LEAD IN PHASE: 09/MAY/2022; CYCLE 1 START DATE : 17/MAY/2022 (CYCLE 1 - 4)
     Route: 048
     Dates: start: 20220509
  2. FUTIBATINIB [Suspect]
     Active Substance: FUTIBATINIB
     Indication: Adenoid cystic carcinoma
     Dosage: 16 MG, 1X/DAY (CYCLE 1 - 4 (16 MG,1 IN 1 D)
     Route: 048
     Dates: start: 20220517
  3. SEVELAMER [Concomitant]
     Active Substance: SEVELAMER
     Indication: Hyperphosphataemia
     Dosage: UNK
     Route: 048
  4. OMEPRAZOLE [Concomitant]
     Active Substance: OMEPRAZOLE
     Indication: Gastrooesophageal reflux disease
     Dosage: UNK
     Route: 048

REACTIONS (2)
  - Hypotension [Recovered/Resolved]
  - Dehydration [Recovered/Resolved]

NARRATIVE: CASE EVENT DATE: 20220727
